FAERS Safety Report 7826702-2 (Version None)
Quarter: 2011Q4

REPORT INFORMATION
  Report Type: 
  Country: None (occurrence: None)
  Receive Date: 20111020
  Receipt Date: 20110824
  Transmission Date: 20120403
  Serious: No
  Sender: FDA-Public Use
  Company Number: US-MYLANLABS-2011S1016669

PATIENT
  Age: 69 Year
  Sex: Female

DRUGS (4)
  1. CLONIDINE [Suspect]
     Indication: BLOOD PRESSURE INCREASED
     Dosage: CHANGED QW
     Route: 062
     Dates: start: 20110101
  2. METOPROLOL TARTRATE [Concomitant]
  3. CLONIDINE [Suspect]
     Route: 062
     Dates: start: 20110101
  4. LISINOPRIL [Concomitant]

REACTIONS (1)
  - APPLICATION SITE RASH [None]
